FAERS Safety Report 23163558 (Version 1)
Quarter: 2023Q4

REPORT INFORMATION
  Report Type: Spontaneous
  Country: PK (occurrence: PK)
  Receive Date: 20231109
  Receipt Date: 20231109
  Transmission Date: 20240109
  Serious: Yes (Other)
  Sender: FDA-Public Use
  Company Number: PK-MLMSERVICE-20231026-4619124-2

PATIENT
  Age: 3 Year
  Sex: Male

DRUGS (4)
  1. METHOTREXATE [Suspect]
     Active Substance: METHOTREXATE
     Indication: Precursor T-lymphoblastic lymphoma/leukaemia
     Dosage: MAINTENANCE CYCLE
     Route: 048
  2. VINCRISTINE [Suspect]
     Active Substance: VINCRISTINE
     Indication: Precursor T-lymphoblastic lymphoma/leukaemia
     Dosage: MAINTENANCE CYCLE
  3. MERCAPTOPURINE [Suspect]
     Active Substance: MERCAPTOPURINE
     Indication: Precursor T-lymphoblastic lymphoma/leukaemia
     Dosage: MAINTENANCE CYCLE
     Route: 048
  4. DEXAMETHASONE [Suspect]
     Active Substance: DEXAMETHASONE
     Indication: Precursor T-lymphoblastic lymphoma/leukaemia
     Dosage: MAINTENANCE CYCLE

REACTIONS (6)
  - Liver abscess [Unknown]
  - Renal abscess [Unknown]
  - Angiocentric lymphoma [Unknown]
  - Rash erythematous [Unknown]
  - Splenic abscess [Unknown]
  - Febrile neutropenia [Unknown]
